FAERS Safety Report 9994349 (Version 4)
Quarter: 2014Q1

REPORT INFORMATION
  Report Type: Report from Study
  Country: CA (occurrence: CA)
  Receive Date: 20140311
  Receipt Date: 20140321
  Transmission Date: 20141002
  Serious: Yes (Hospitalization)
  Sender: FDA-Public Use
  Company Number: CA-ROCHE-1353603

PATIENT
  Age: 36 Year
  Sex: Female

DRUGS (3)
  1. RITUXAN [Suspect]
     Indication: IMMUNE THROMBOCYTOPENIC PURPURA
     Dosage: 1ST RPAP DOSE, LAST INFUSION ON 06/MAR/2014
     Route: 042
  2. RITUXAN [Suspect]
     Route: 065
  3. TYLENOL [Concomitant]

REACTIONS (6)
  - Platelet count decreased [Unknown]
  - Immune thrombocytopenic purpura [Not Recovered/Not Resolved]
  - Platelet count increased [Not Recovered/Not Resolved]
  - Paraesthesia oral [Unknown]
  - Hypersensitivity [Unknown]
  - Off label use [Unknown]
